FAERS Safety Report 14855802 (Version 3)
Quarter: 2018Q2

REPORT INFORMATION
  Report Type: Spontaneous
  Country: IL (occurrence: IL)
  Receive Date: 20180507
  Receipt Date: 20180530
  Transmission Date: 20180711
  Serious: Yes (Hospitalization, Other)
  Sender: FDA-Public Use
  Company Number: IL-PFIZER INC-2018182351

PATIENT
  Age: 4 Year
  Sex: Female

DRUGS (1)
  1. ELELYSO [Suspect]
     Active Substance: TALIGLUCERASE ALFA
     Indication: GAUCHER^S DISEASE
     Dosage: 60 IU/KG- 1000 UNITS PER MONTH , EVERY TWO WEEKS
     Route: 042
     Dates: start: 20180416, end: 20180501

REACTIONS (6)
  - Condition aggravated [Unknown]
  - Thrombocytopenia [Unknown]
  - Epistaxis [Unknown]
  - Epistaxis [Unknown]
  - Anaemia [Recovering/Resolving]
  - Hypersensitivity [Unknown]

NARRATIVE: CASE EVENT DATE: 201804
